FAERS Safety Report 24451502 (Version 1)
Quarter: 2024Q4

REPORT INFORMATION
  Report Type: Spontaneous
  Country: US (occurrence: US)
  Receive Date: 20241017
  Receipt Date: 20241017
  Transmission Date: 20250114
  Serious: No
  Sender: PFIZER
  Company Number: US-PFIZER INC-202400275364

PATIENT
  Age: 17 Year
  Sex: Female
  Weight: 65.77 kg

DRUGS (3)
  1. NURTEC ODT [Suspect]
     Active Substance: RIMEGEPANT SULFATE
     Indication: Migraine
     Dosage: ONE PILL
  2. NORTRIPTYLINE [Concomitant]
     Active Substance: NORTRIPTYLINE
     Indication: Migraine
  3. MEMANTINE [Concomitant]
     Active Substance: MEMANTINE
     Indication: Migraine

REACTIONS (3)
  - Drug resistance [Unknown]
  - Therapeutic product effect incomplete [Unknown]
  - Off label use [Unknown]
